FAERS Safety Report 8590086-5 (Version None)
Quarter: 2012Q3

REPORT INFORMATION
  Report Type: 
  Country: None (occurrence: None)
  Receive Date: 20120813
  Receipt Date: 20120808
  Transmission Date: 20120928
  Serious: Yes (Hospitalization)
  Sender: FDA-Public Use
  Company Number: US-VERTEX PHARMACEUTICALS INC.-AE-2012-009447

PATIENT
  Sex: Male

DRUGS (6)
  1. RIBAVIRIN [Concomitant]
     Indication: HEPATITIS C
     Dates: start: 20120316, end: 20120508
  2. PEGASYS [Concomitant]
     Indication: HEPATITIS C
     Dates: start: 20120316, end: 20120508
  3. PEGASYS [Concomitant]
     Dates: start: 20120515
  4. RIBAVIRIN [Concomitant]
     Dates: start: 20120515
  5. INCIVEK [Suspect]
     Indication: HEPATITIS C
     Route: 048
     Dates: start: 20120316, end: 20120508
  6. INCIVEK [Suspect]
     Route: 048
     Dates: start: 20120515, end: 20120615

REACTIONS (2)
  - FATIGUE [None]
  - STAPHYLOCOCCAL INFECTION [None]
